FAERS Safety Report 10127924 (Version 2)
Quarter: 2015Q1

REPORT INFORMATION
  Report Type: Other
  Country: US (occurrence: US)
  Receive Date: 20140428
  Receipt Date: 20150211
  Transmission Date: 20150720
  Serious: Yes (Death, Hospitalization, Other)
  Sender: FDA-Public Use
  Company Number: US-GSKPPD-2014GSK029374

PATIENT
  Age: 31 Year
  Sex: Female

DRUGS (3)
  1. AVANDIA [Suspect]
     Active Substance: ROSIGLITAZONE MALEATE
     Indication: DIABETES MELLITUS
     Dosage: AVANDIA WAS NOT LISTED AMONG THE PATIENTS RECORDS REVIEWED
     Route: 048
  2. COREG [Concomitant]
     Active Substance: CARVEDILOL
  3. DEMADEX [Concomitant]
     Active Substance: TORSEMIDE
     Dates: start: 20070812

REACTIONS (3)
  - Myocardial infarction [Unknown]
  - Cardiomyopathy [Recovered/Resolved]
  - Cardiomyopathy [Fatal]

NARRATIVE: CASE EVENT DATE: 20070804
